FAERS Safety Report 14610641 (Version 2)
Quarter: 2018Q2

REPORT INFORMATION
  Report Type: Spontaneous
  Country: FR (occurrence: FR)
  Receive Date: 20180307
  Receipt Date: 20180410
  Transmission Date: 20180711
  Serious: Yes (Other)
  Sender: FDA-Public Use
  Company Number: FR-MERCK KGAA-2043202

PATIENT
  Age: 80 Year
  Sex: Female

DRUGS (3)
  1. TEMESTA (LORAZEPAM) [Concomitant]
     Active Substance: LORAZEPAM
  2. LEVOTHYROX 175 NF [Suspect]
     Active Substance: LEVOTHYROXINE
     Dates: start: 20180219, end: 201803
  3. NOVOTHYROX [Suspect]
     Active Substance: LEVOTHYROXINE SODIUM
     Indication: POST PROCEDURAL HYPOTHYROIDISM
     Dates: start: 201801, end: 201802

REACTIONS (8)
  - Blindness transient [Recovered/Resolved]
  - Middle insomnia [None]
  - Blood thyroid stimulating hormone decreased [None]
  - Arthralgia [Not Recovered/Not Resolved]
  - Eye disorder [Recovered/Resolved]
  - Pruritus generalised [Recovering/Resolving]
  - Toxicity to various agents [None]
  - Insomnia [None]

NARRATIVE: CASE EVENT DATE: 2018
